FAERS Safety Report 5766831-0 (Version None)
Quarter: 2008Q2

REPORT INFORMATION
  Report Type: 
  Country: None (occurrence: None)
  Receive Date: 20080610
  Receipt Date: 20080610
  Transmission Date: 20081010
  Serious: Yes (Other)
  Sender: FDA-Public Use
  Company Number: None

PATIENT
  Age: 52 Year
  Sex: Male
  Weight: 77.1115 kg

DRUGS (2)
  1. BUPRENEX [Suspect]
     Indication: DRUG WITHDRAWAL SYNDROME
     Dosage: 0.15, 0.3 Q HOUR IM
     Route: 030
     Dates: start: 20080606, end: 20080606
  2. SUBOXONE [Suspect]
     Dosage: 4MG ONE DOSE SL
     Route: 060
     Dates: start: 20080606, end: 20080606

REACTIONS (3)
  - AGITATION [None]
  - ANXIETY [None]
  - DELIRIUM [None]
